FAERS Safety Report 6653559-8 (Version None)
Quarter: 2010Q1

REPORT INFORMATION
  Report Type: 
  Country: None (occurrence: None)
  Receive Date: 20100326
  Receipt Date: 20100319
  Transmission Date: 20100710
  Serious: Yes (Other)
  Sender: FDA-Public Use
  Company Number: CA-GENENTECH-299613

PATIENT
  Sex: Male

DRUGS (2)
  1. RITUXAN [Suspect]
     Indication: NEOPLASM MALIGNANT
     Dosage: UNK
     Route: 065
  2. FLUDARABINE PHOSPHATE [Concomitant]
     Indication: NEOPLASM MALIGNANT
     Dosage: UNK
     Route: 042

REACTIONS (1)
  - DEEP VEIN THROMBOSIS [None]
